FAERS Safety Report 12480709 (Version 2)
Quarter: 2016Q2

REPORT INFORMATION
  Report Type: Spontaneous
  Country: IT (occurrence: IT)
  Receive Date: 20160620
  Receipt Date: 20160623
  Transmission Date: 20160815
  Serious: Yes (Other)
  Sender: FDA-Public Use
  Company Number: IT-JNJFOC-20160610654

PATIENT

DRUGS (2)
  1. SOFOSBUVIR [Suspect]
     Active Substance: SOFOSBUVIR
     Indication: HEPATITIS C
     Route: 065
  2. SIMEPREVIR [Suspect]
     Active Substance: SIMEPREVIR
     Indication: HEPATITIS C
     Route: 048

REACTIONS (7)
  - Remission not achieved [Unknown]
  - Thrombocytopenia [Unknown]
  - Photosensitivity reaction [Unknown]
  - Drug interaction [Unknown]
  - Gastrointestinal disorder [Unknown]
  - Dizziness [Unknown]
  - Headache [Unknown]
